FAERS Safety Report 15178261 (Version 1)
Quarter: 2018Q3

REPORT INFORMATION
  Report Type: Spontaneous
  Country: FR (occurrence: FR)
  Receive Date: 20180721
  Receipt Date: 20180721
  Transmission Date: 20181010
  Serious: Yes (Hospitalization, Other)
  Sender: FDA-Public Use
  Company Number: FR-AUROBINDO-AUR-APL-2018-035489

PATIENT
  Age: 67 Year
  Sex: Female
  Weight: 50 kg

DRUGS (4)
  1. LANSOPRAZOLE MYLAN [Suspect]
     Active Substance: LANSOPRAZOLE
     Indication: SUPERINFECTION
     Route: 048
     Dates: start: 20180430, end: 20180612
  2. LEVOFLOXACIN. [Suspect]
     Active Substance: LEVOFLOXACIN
     Indication: SUPERINFECTION
     Dosage: 1000 MILLIGRAM, DAILY
     Route: 041
     Dates: start: 20180511, end: 20180515
  3. PIPERACILLIN/TAZOBACTAM PANPHARMA [Suspect]
     Active Substance: PIPERACILLIN SODIUM\TAZOBACTAM SODIUM
     Indication: SUPERINFECTION
     Route: 041
     Dates: start: 20180515, end: 20180605
  4. CIPROFLOXACIN. [Suspect]
     Active Substance: CIPROFLOXACIN
     Indication: SUPERINFECTION
     Dosage: 2250 MILLIGRAM, DAILY
     Route: 048
     Dates: start: 20180515, end: 20180605

REACTIONS (2)
  - Rash maculo-papular [Recovering/Resolving]
  - Drug reaction with eosinophilia and systemic symptoms [Recovering/Resolving]

NARRATIVE: CASE EVENT DATE: 20180605
